FAERS Safety Report 10367818 (Version 1)
Quarter: 2014Q3

REPORT INFORMATION
  Report Type: Spontaneous
  Country: FR (occurrence: FR)
  Receive Date: 20140807
  Receipt Date: 20140807
  Transmission Date: 20150326
  Serious: Yes (Hospitalization)
  Sender: FDA-Public Use
  Company Number: FR-PFIZER INC-2014214478

PATIENT
  Age: 33 Year
  Sex: Female

DRUGS (3)
  1. FOLLITROPIN BETA [Suspect]
     Active Substance: FOLLITROPIN
     Indication: IN VITRO FERTILISATION
     Dosage: 125 IU, 1X/DAY
     Route: 058
     Dates: start: 20140419, end: 20140427
  2. OVITRELLE [Suspect]
     Active Substance: CHORIOGONADOTROPIN ALFA
     Indication: IN VITRO FERTILISATION
     Dosage: 1 DF, SINGLE
     Route: 058
     Dates: start: 20140428, end: 20140428
  3. SYNAREL [Suspect]
     Active Substance: NAFARELIN ACETATE
     Indication: IN VITRO FERTILISATION
     Dosage: 2 DF, 1X/DAY
     Route: 045
     Dates: start: 20140403, end: 20140427

REACTIONS (1)
  - Adnexal torsion [Recovered/Resolved]

NARRATIVE: CASE EVENT DATE: 20140619
